FAERS Safety Report 6358280-1 (Version None)
Quarter: 2009Q3

REPORT INFORMATION
  Report Type: 
  Country: None (occurrence: None)
  Receive Date: 20090911
  Receipt Date: 20090903
  Transmission Date: 20100115
  Serious: Yes (Hospitalization)
  Sender: FDA-Public Use
  Company Number: 2009SP023603

PATIENT
  Age: 51 Year
  Sex: Female
  Weight: 72 kg

DRUGS (2)
  1. PEG-INTRON [Suspect]
     Indication: HEPATITIS C
     Dosage: 100 MCG;QW
     Dates: start: 20090416, end: 20090711
  2. REBETOL [Suspect]
     Indication: HEPATITIS C
     Dosage: 1000 MG;QD;PO
     Route: 048
     Dates: start: 20090416, end: 20090711

REACTIONS (6)
  - DIARRHOEA [None]
  - ELECTROLYTE IMBALANCE [None]
  - ESCHERICHIA URINARY TRACT INFECTION [None]
  - HEPATIC ENCEPHALOPATHY [None]
  - HYPOKALAEMIA [None]
  - PYREXIA [None]
